FAERS Safety Report 4967264-7 (Version None)
Quarter: 2006Q2

REPORT INFORMATION
  Report Type: 
  Country: None (occurrence: None)
  Receive Date: 20060404
  Receipt Date: 20060321
  Transmission Date: 20061013
  Serious: Yes (Hospitalization)
  Sender: FDA-Public Use
  Company Number: 2006P1000042

PATIENT
  Age: 73 Year
  Sex: Male
  Weight: 80 kg

DRUGS (7)
  1. RETEPLASE (RETEPLASE) [Suspect]
     Indication: ACUTE MYOCARDIAL INFARCTION
     Dosage: IV
     Route: 042
     Dates: start: 20060110, end: 20060110
  2. REOPRO [Suspect]
     Indication: ACUTE MYOCARDIAL INFARCTION
     Dosage: IV
     Route: 042
     Dates: start: 20060110, end: 20060110
  3. ACETYLSALICYLATE CALCIUM [Concomitant]
  4. CLOPIDOGREL [Concomitant]
  5. PANTOPRAZOLE [Concomitant]
  6. HEPARIN [Concomitant]
  7. LYSINE [Concomitant]

REACTIONS (8)
  - ARRHYTHMIA [None]
  - ATRIAL TACHYCARDIA [None]
  - CATHETER SITE HAEMATOMA [None]
  - HAEMOGLOBIN DECREASED [None]
  - MUSCULOSKELETAL STIFFNESS [None]
  - POST PROCEDURAL COMPLICATION [None]
  - VENTRICULAR EXTRASYSTOLES [None]
  - VENTRICULAR TACHYCARDIA [None]
